FAERS Safety Report 5857918-2 (Version None)
Quarter: 2008Q3

REPORT INFORMATION
  Report Type: 
  Country: None (occurrence: None)
  Receive Date: 20080826
  Receipt Date: 20080819
  Transmission Date: 20090109
  Serious: Yes (Other)
  Sender: FDA-Public Use
  Company Number: US-ASTRAZENECA-2008UW16956

PATIENT
  Age: 70 Year
  Sex: Female
  Weight: 55.3 kg

DRUGS (4)
  1. ARIMIDEX [Suspect]
     Indication: BREAST CANCER
     Route: 048
     Dates: start: 20071101
  2. LIPITOR [Concomitant]
  3. METFORMIN HCL [Concomitant]
  4. ALENDRONATE SODIUM [Concomitant]

REACTIONS (2)
  - CARPAL TUNNEL DECOMPRESSION [None]
  - POST PROCEDURAL COMPLICATION [None]
